FAERS Safety Report 7702212-8 (Version None)
Quarter: 2011Q3

REPORT INFORMATION
  Report Type: 
  Country: None (occurrence: None)
  Receive Date: 20110822
  Receipt Date: 20110808
  Transmission Date: 20111222
  Serious: Yes (Hospitalization)
  Sender: FDA-Public Use
  Company Number: PHHY2011IT71639

PATIENT
  Sex: Female

DRUGS (4)
  1. INSULIN [Concomitant]
     Indication: DIABETES MELLITUS
     Dosage: UNK UKN, UNK
  2. MAALOX [Concomitant]
     Indication: HYPERCHLORHYDRIA
     Dosage: 400 MG, BID
     Route: 048
  3. EXJADE [Suspect]
     Indication: THALASSAEMIA BETA
     Dosage: 30 MG/KG, DAILY
     Route: 048
     Dates: start: 20110303, end: 20110517
  4. TYROSINE [Concomitant]
     Indication: HYPOTHYROIDISM
     Dosage: UNK UKN, UNK

REACTIONS (1)
  - MELAENA [None]
